FAERS Safety Report 19865266 (Version 1)
Quarter: 2021Q3

REPORT INFORMATION
  Report Type: Report from Study
  Country: CA (occurrence: CA)
  Receive Date: 20210921
  Receipt Date: 20210921
  Transmission Date: 20211014
  Serious: Yes (Other)
  Sender: FDA-Public Use
  Company Number: CA-EISAI MEDICAL RESEARCH-EC-2021-099505

PATIENT
  Age: 52 Year
  Sex: Male
  Weight: 140 kg

DRUGS (21)
  1. BACLOFEN. [Suspect]
     Active Substance: BACLOFEN
     Indication: PRODUCT USED FOR UNKNOWN INDICATION
     Route: 048
  2. GABAPENTIN. [Suspect]
     Active Substance: GABAPENTIN
     Indication: PRODUCT USED FOR UNKNOWN INDICATION
     Dosage: UNKNOWN FREQUENCY
     Route: 065
  3. ACETYLSALICYLIC ACID/CODEINE [Concomitant]
     Route: 065
  4. ATIVAN [Concomitant]
     Active Substance: LORAZEPAM
     Route: 065
  5. FAMPYRA [Concomitant]
     Active Substance: DALFAMPRIDINE
     Route: 065
  6. RABEPRAZOLE [Suspect]
     Active Substance: RABEPRAZOLE
     Indication: SECONDARY PROGRESSIVE MULTIPLE SCLEROSIS
     Dosage: UNKNOWN FREQUENCY
     Route: 048
  7. AMLODIPINE BESILATE/CANDESARTAN CILEXETIL [Suspect]
     Active Substance: AMLODIPINE BESYLATE\CANDESARTAN CILEXETIL
     Indication: SECONDARY PROGRESSIVE MULTIPLE SCLEROSIS
     Dosage: UNKNOWN FREQUENCY
     Route: 048
  8. ALLOPURINOL/BENZBROMARONE [Concomitant]
     Route: 048
  9. VITAMIN D3 [Concomitant]
     Active Substance: CHOLECALCIFEROL
     Route: 065
  10. LORAZEPAM. [Suspect]
     Active Substance: LORAZEPAM
     Indication: PRODUCT USED FOR UNKNOWN INDICATION
     Dosage: UNKNOWN DOSE AND FREQUENCY
     Route: 048
  11. PRAMIPEXOLE DIHYDROCHLORIDE. [Suspect]
     Active Substance: PRAMIPEXOLE DIHYDROCHLORIDE
     Indication: SECONDARY PROGRESSIVE MULTIPLE SCLEROSIS
     Dosage: UNKNOWN FREQUENCY
     Route: 048
  12. TAMSULOSIN [Suspect]
     Active Substance: TAMSULOSIN
     Indication: SECONDARY PROGRESSIVE MULTIPLE SCLEROSIS
     Dosage: UNKNOWN DOSE AND FREQUENCY
  13. CALCIUM [Concomitant]
     Active Substance: CALCIUM
     Route: 065
  14. ASPIRIN. [Concomitant]
     Active Substance: ASPIRIN
     Route: 065
  15. BACLOFEN. [Suspect]
     Active Substance: BACLOFEN
  16. BISOPROLOL [Suspect]
     Active Substance: BISOPROLOL
     Indication: SECONDARY PROGRESSIVE MULTIPLE SCLEROSIS
     Dosage: UNKNOWN DOSE AND FREQUENCY
     Route: 048
  17. REBIF [Suspect]
     Active Substance: INTERFERON BETA-1A
     Indication: PRODUCT USED FOR UNKNOWN INDICATION
     Dosage: UNKNOWN DOSE AND FREQUENCY
     Route: 058
  18. AMINOBENZOIC ACID/BIOTIN/CALCIUM DPANTOTHENATE/CHOLINE BITARTRATE [Concomitant]
     Route: 065
  19. DOXEPIN HYDROCHLORIDE. [Suspect]
     Active Substance: DOXEPIN HYDROCHLORIDE
     Indication: PRODUCT USED FOR UNKNOWN INDICATION
     Dosage: UNKNOWN FREQUENCY
     Route: 065
  20. ROSUVASTATIN CALCIUM. [Suspect]
     Active Substance: ROSUVASTATIN CALCIUM
     Indication: PRODUCT USED FOR UNKNOWN INDICATION
     Dosage: UNKNOWN FREQUENCY
     Route: 048
  21. TECFIDERA [Suspect]
     Active Substance: DIMETHYL FUMARATE
     Indication: PRODUCT USED FOR UNKNOWN INDICATION
     Dosage: UNKNOWN DOSE AND FREQUENCY
     Route: 065

REACTIONS (24)
  - Central nervous system lesion [Unknown]
  - Erectile dysfunction [Unknown]
  - Fall [Unknown]
  - Hypoaesthesia [Unknown]
  - Micturition urgency [Unknown]
  - Multiple sclerosis relapse [Unknown]
  - Hypertonic bladder [Unknown]
  - Muscle spasticity [Unknown]
  - Pollakiuria [Unknown]
  - Anxiety [Unknown]
  - Dysarthria [Unknown]
  - Gait spastic [Unknown]
  - Dizziness [Unknown]
  - Ataxia [Unknown]
  - Memory impairment [Unknown]
  - Monoparesis [Unknown]
  - Nocturia [Unknown]
  - Pain [Unknown]
  - Needle fatigue [Unknown]
  - Bradycardia [Unknown]
  - Balance disorder [Unknown]
  - Insomnia [Unknown]
  - Movement disorder [Unknown]
  - Relapsing-remitting multiple sclerosis [Unknown]

NARRATIVE: CASE EVENT DATE: 202005
